FAERS Safety Report 8286158-5 (Version None)
Quarter: 2012Q2

REPORT INFORMATION
  Report Type: 
  Country: None (occurrence: None)
  Receive Date: 20120416
  Receipt Date: 20120406
  Transmission Date: 20120825
  Serious: No
  Sender: FDA-Public Use
  Company Number: US-BIOGENIDEC-2012BI012398

PATIENT
  Age: 40 Year
  Sex: Female

DRUGS (2)
  1. TYSABRI [Suspect]
     Indication: MULTIPLE SCLEROSIS
     Route: 042
     Dates: start: 20110214
  2. GABAPENTIN [Concomitant]
     Indication: BACK PAIN
     Route: 048
     Dates: start: 20080101

REACTIONS (5)
  - INFLUENZA LIKE ILLNESS [None]
  - RASH PAPULAR [None]
  - WHEEZING [None]
  - DYSPNOEA [None]
  - ARTHRALGIA [None]
